FAERS Safety Report 7531342-9 (Version None)
Quarter: 2011Q2

REPORT INFORMATION
  Report Type: 
  Country: None (occurrence: None)
  Receive Date: 20110608
  Receipt Date: 20110525
  Transmission Date: 20111010
  Serious: Yes (Other)
  Sender: FDA-Public Use
  Company Number: PHHY2011US41539

PATIENT
  Sex: Female
  Weight: 82.086 kg

DRUGS (16)
  1. LEVOTHYROXINE SODIUM [Concomitant]
     Indication: HYPOTHYROIDISM
     Dosage: 112 MG, UNK
     Route: 048
  2. ZOFRAN [Concomitant]
     Dosage: 1 MG,
  3. AMLODIPINE [Concomitant]
     Dosage: 10 MG, UNK
  4. ASPIRIN [Concomitant]
     Dosage: 81 MG
  5. KLOR-CON [Concomitant]
  6. SOTALOL HCL [Concomitant]
     Indication: HEART RATE INCREASED
     Dosage: 120 MG
     Route: 048
  7. PRILOSEC [Concomitant]
     Dosage: 20 MG
  8. SOLU-MEDROL [Concomitant]
     Dosage: UNK
     Dates: start: 20110516
  9. LASIX [Concomitant]
     Dosage: 60 MG
  10. VITAMIN TAB [Concomitant]
  11. PRAVASTATIN [Concomitant]
     Indication: HYPERLIPIDAEMIA
     Dosage: 200 MG
     Route: 048
  12. TOPROL-XL [Concomitant]
     Indication: HYPERTENSION
     Dosage: 25 MG
  13. CALCIUM WITH VITAMIN D [Concomitant]
  14. DIGOXIN [Concomitant]
     Indication: ATRIAL FIBRILLATION
     Dosage: 25 MG
     Route: 048
  15. RECLAST [Suspect]
     Indication: OSTEOPOROSIS
     Dosage: 5 MG
     Route: 042
     Dates: start: 20110514
  16. DEXAMETHASONE [Concomitant]
     Dosage: UNK
     Dates: start: 20110516

REACTIONS (9)
  - DECREASED APPETITE [None]
  - BLINDNESS [None]
  - EYE SWELLING [None]
  - EYE DISORDER [None]
  - FEELING ABNORMAL [None]
  - NAUSEA [None]
  - INFLUENZA LIKE ILLNESS [None]
  - CHILLS [None]
  - VOMITING [None]
